FAERS Safety Report 5734745-8 (Version None)
Quarter: 2008Q2

REPORT INFORMATION
  Report Type: 
  Country: None (occurrence: None)
  Receive Date: 20080508
  Receipt Date: 20080508
  Transmission Date: 20081010
  Serious: No
  Sender: FDA-Public Use
  Company Number: None

PATIENT
  Age: 48 Year
  Sex: Female
  Weight: 79.3795 kg

DRUGS (2)
  1. CREST PROHEALTH ANTIGINGIVITIS/ANTIPLAQUE ORAL RINSE [Suspect]
     Indication: DENTAL PLAQUE
     Dosage: 20 ML TWICE A DAY
     Dates: start: 20071101, end: 20080507
  2. CREST PROHEALTH ANTIGINGIVITIS/ANTIPLAQUE ORAL RINSE [Suspect]
     Indication: GINGIVITIS
     Dosage: 20 ML TWICE A DAY
     Dates: start: 20071101, end: 20080507

REACTIONS (2)
  - GINGIVAL DISCOLOURATION [None]
  - TOOTH DISCOLOURATION [None]
